FAERS Safety Report 23912404 (Version 1)
Quarter: 2024Q2

REPORT INFORMATION
  Report Type: Spontaneous
  Country: ES (occurrence: ES)
  Receive Date: 20240528
  Receipt Date: 20240528
  Transmission Date: 20240716
  Serious: Yes (Hospitalization, Other)
  Sender: FDA-Public Use
  Company Number: None

PATIENT
  Age: 73 Year
  Sex: Female
  Weight: 59 kg

DRUGS (14)
  1. YESCARTA [Suspect]
     Active Substance: AXICABTAGENE CILOLEUCEL
     Indication: B-cell lymphoma
     Route: 042
     Dates: start: 20230703, end: 20230703
  2. OMEPRAZOLE [Concomitant]
     Active Substance: DONEPEZIL HYDROCHLORIDE\OMEPRAZOLE\OMEPRAZOLE MAGNESIUM
  3. ALLOPURINOL [Concomitant]
     Active Substance: ALLOPURINOL
  4. ONDANSETRON [Concomitant]
     Active Substance: ONDANSETRON
  5. BISOPROLOL [Concomitant]
     Active Substance: BISOPROLOL\BISOPROLOL FUMARATE
  6. DEXCHLORPHENIRAMINE [Concomitant]
     Active Substance: DEXCHLORPHENIRAMINE
  7. ACYCLOVIR [Concomitant]
     Active Substance: ACYCLOVIR
  8. ENOXAPARINA DE SODIO [Concomitant]
  9. FUROSEMIDE [Concomitant]
     Active Substance: FUROSEMIDE
  10. LORMETAZEPAM [Concomitant]
     Active Substance: LORMETAZEPAM
  11. ACETAMINOPHEN [Concomitant]
     Active Substance: ACETAMINOPHEN
  12. LEVETIRACETAM [Concomitant]
     Active Substance: LEVETIRACETAM
  13. FLUCONAZOLE [Concomitant]
     Active Substance: FLUCONAZOLE
  14. LACTULOSE [Concomitant]
     Active Substance: LACTULOSE

REACTIONS (2)
  - Cytokine release syndrome [Recovered/Resolved]
  - Neutropenia [Recovered/Resolved]

NARRATIVE: CASE EVENT DATE: 20230704
